FAERS Safety Report 24878076 (Version 2)
Quarter: 2025Q1

REPORT INFORMATION
  Report Type: Spontaneous
  Country: US (occurrence: US)
  Receive Date: 20250123
  Receipt Date: 20250127
  Transmission Date: 20250409
  Serious: No
  Sender: ELI LILLY AND COMPANY
  Company Number: US-ELI_LILLY_AND_COMPANY-US202501014899

PATIENT
  Age: 73 Year
  Sex: Female

DRUGS (6)
  1. FORTEO [Suspect]
     Active Substance: TERIPARATIDE
     Indication: Osteoporosis
     Route: 058
  2. FORTEO [Suspect]
     Active Substance: TERIPARATIDE
     Indication: Osteoporosis
     Route: 058
  3. FORTEO [Suspect]
     Active Substance: TERIPARATIDE
     Indication: Osteoporosis
     Route: 058
  4. FORTEO [Suspect]
     Active Substance: TERIPARATIDE
     Route: 058
  5. FORTEO [Suspect]
     Active Substance: TERIPARATIDE
     Route: 058
  6. FORTEO [Suspect]
     Active Substance: TERIPARATIDE
     Route: 058

REACTIONS (2)
  - Drug dose omission by device [Recovering/Resolving]
  - Incorrect dose administered by device [Unknown]
